FAERS Safety Report 13732965 (Version 1)
Quarter: 2017Q3

REPORT INFORMATION
  Report Type: Spontaneous
  Country: US (occurrence: US)
  Receive Date: 20170707
  Receipt Date: 20170707
  Transmission Date: 20171127
  Serious: No
  Sender: FDA-Public Use
  Company Number: US-ROCHE-1562533

PATIENT
  Sex: Male

DRUGS (2)
  1. CYTOVENE IV [Suspect]
     Active Substance: GANCICLOVIR SODIUM
     Indication: CYTOMEGALOVIRUS COLITIS
     Route: 042
  2. CYTOVENE IV [Suspect]
     Active Substance: GANCICLOVIR SODIUM
     Dosage: DOSE MODIFICATION
     Route: 042

REACTIONS (1)
  - Renal impairment [Unknown]
